FAERS Safety Report 9783656 (Version 2)
Quarter: 2017Q1

REPORT INFORMATION
  Report Type: Report from Study
  Country: US (occurrence: US)
  Receive Date: 20131226
  Receipt Date: 20170309
  Transmission Date: 20170429
  Serious: Yes (Death, Other)
  Sender: FDA-Public Use
  Company Number: US-CELGENEUS-163-21880-13124178

PATIENT

DRUGS (9)
  1. BACTRIM DS [Concomitant]
     Active Substance: SULFAMETHOXAZOLE\TRIMETHOPRIM
     Indication: PROPHYLAXIS
     Route: 065
  2. CYCLOPHOSPHAMIDE. [Suspect]
     Active Substance: CYCLOPHOSPHAMIDE
     Indication: NON-HODGKIN^S LYMPHOMA
     Dosage: 250 MILLIGRAM/SQ. METER
     Route: 065
  3. ASPIRIN. [Concomitant]
     Active Substance: ASPIRIN
     Indication: PROPHYLAXIS
     Dosage: 325 MILLIGRAM
     Route: 048
  4. RITUXIMAB [Suspect]
     Active Substance: RITUXIMAB
     Indication: NON-HODGKIN^S LYMPHOMA
     Dosage: 375 MILLIGRAM/SQ. METER
     Route: 041
  5. DEXAMETHASONE. [Suspect]
     Active Substance: DEXAMETHASONE
     Indication: NON-HODGKIN^S LYMPHOMA
     Dosage: 40 MILLIGRAM
     Route: 065
  6. HEPARIN [Concomitant]
     Active Substance: HEPARIN SODIUM
     Indication: PROPHYLAXIS
     Route: 065
  7. ALLOPURINOL. [Concomitant]
     Active Substance: ALLOPURINOL
     Indication: PROPHYLAXIS
     Dosage: 300 MILLIGRAM
     Route: 048
  8. REVLIMID [Suspect]
     Active Substance: LENALIDOMIDE
     Indication: NON-HODGKIN^S LYMPHOMA
     Dosage: 20 MILLIGRAM
     Route: 048
  9. WARFARIN [Concomitant]
     Active Substance: WARFARIN
     Indication: PROPHYLAXIS
     Route: 065

REACTIONS (14)
  - Non-Hodgkin^s lymphoma [Unknown]
  - Nausea [Unknown]
  - Neutropenia [Unknown]
  - Leukopenia [Unknown]
  - Febrile neutropenia [Unknown]
  - Rash [Unknown]
  - Anaemia [Unknown]
  - Pneumonia [Unknown]
  - Non-Hodgkin^s lymphoma recurrent [Fatal]
  - Toxicity to various agents [Unknown]
  - Thrombocytopenia [Unknown]
  - Thrombosis [Unknown]
  - Fatigue [Unknown]
  - Diarrhoea [Unknown]
